FAERS Safety Report 6332447-0 (Version None)
Quarter: 2009Q3

REPORT INFORMATION
  Report Type: 
  Country: None (occurrence: None)
  Receive Date: 20090827
  Receipt Date: 20090827
  Transmission Date: 20100115
  Serious: No
  Sender: FDA-Public Use
  Company Number: None

PATIENT
  Age: 57 Year
  Sex: Female
  Weight: 63.9 kg

DRUGS (2)
  1. ANASTROZOLE [Suspect]
     Indication: BREAST CANCER
     Dosage: 1MG DAILY PO
     Route: 048
     Dates: start: 20061009, end: 20090210
  2. OXYCODONE HCL AND ACETAMINOPHEN [Concomitant]

REACTIONS (15)
  - ANXIETY [None]
  - APHASIA [None]
  - ASTHENIA [None]
  - COGNITIVE DISORDER [None]
  - DEPRESSED MOOD [None]
  - DISTURBANCE IN ATTENTION [None]
  - DRY EYE [None]
  - DRY MOUTH [None]
  - DYSPHAGIA [None]
  - HYPOAESTHESIA [None]
  - INSOMNIA [None]
  - JUDGEMENT IMPAIRED [None]
  - MEMORY IMPAIRMENT [None]
  - MERYCISM [None]
  - WEIGHT INCREASED [None]
